FAERS Safety Report 6417993-3 (Version None)
Quarter: 2009Q4

REPORT INFORMATION
  Report Type: 
  Country: None (occurrence: None)
  Receive Date: 20091028
  Receipt Date: 20091021
  Transmission Date: 20100525
  Serious: Yes (Other)
  Sender: FDA-Public Use
  Company Number: CL-ABBOTT-09P-034-0604074-00

PATIENT
  Sex: Male
  Weight: 75 kg

DRUGS (1)
  1. HUMIRA [Suspect]
     Indication: RHEUMATOID ARTHRITIS
     Route: 058
     Dates: start: 20071130, end: 20090925

REACTIONS (3)
  - PNEUMONIA [None]
  - RETINAL DETACHMENT [None]
  - URINARY TRACT INFECTION [None]
